FAERS Safety Report 6810881-X (Version None)
Quarter: 2010Q2

REPORT INFORMATION
  Report Type: 
  Country: None (occurrence: None)
  Receive Date: 20100630
  Receipt Date: 20080724
  Transmission Date: 20101027
  Serious: No
  Sender: FDA-Public Use
  Company Number: US-PFIZER INC-2008062010

PATIENT
  Sex: Female
  Weight: 45.909 kg

DRUGS (1)
  1. ESTRING [Suspect]
     Indication: HORMONE REPLACEMENT THERAPY

REACTIONS (2)
  - FUNGAL INFECTION [None]
  - OESOPHAGEAL PAIN [None]
